FAERS Safety Report 25642509 (Version 3)
Quarter: 2025Q4

REPORT INFORMATION
  Report Type: Spontaneous
  Country: US (occurrence: US)
  Receive Date: 20250805
  Receipt Date: 20251123
  Transmission Date: 20260118
  Serious: No
  Sender: SANOFI AVENTIS
  Company Number: US-SA-2025SA224554

PATIENT
  Age: 60 Year
  Sex: Female

DRUGS (2)
  1. DUPIXENT [Suspect]
     Active Substance: DUPILUMAB
     Indication: Asthma
     Dosage: 600 MG, 1X
     Route: 058
     Dates: start: 202507, end: 202507
  2. DUPIXENT [Suspect]
     Active Substance: DUPILUMAB
     Indication: Idiopathic urticaria
     Dosage: 300 MG, QOW
     Route: 058
     Dates: start: 2025, end: 2025

REACTIONS (6)
  - Sunburn [Recovered/Resolved]
  - Hypersensitivity [Recovered/Resolved]
  - Urticaria [Recovered/Resolved]
  - Erythema [Recovered/Resolved]
  - Rash macular [Recovered/Resolved]
  - Injection site swelling [Recovered/Resolved]

NARRATIVE: CASE EVENT DATE: 20250101
